FAERS Safety Report 18212941 (Version 2)
Quarter: 2021Q2

REPORT INFORMATION
  Report Type: Spontaneous
  Country: GB (occurrence: GB)
  Receive Date: 20200831
  Receipt Date: 20210528
  Transmission Date: 20210717
  Serious: Yes (Other)
  Sender: FDA-Public Use
  Company Number: GB-PFIZER INC-2020332529

PATIENT
  Age: 58 Year
  Sex: Female
  Weight: 72 kg

DRUGS (15)
  1. VAGIFEM [Concomitant]
     Active Substance: ESTRADIOL
     Dosage: 2 DF, WEEKLY (INSERTED PER VAGINA)
     Route: 067
     Dates: start: 20200327
  2. RANITIDINE. [Concomitant]
     Active Substance: RANITIDINE
     Dosage: 2 DF, DAILY
     Dates: start: 20200327, end: 20200709
  3. SERTRALINE [Concomitant]
     Active Substance: SERTRALINE HYDROCHLORIDE
     Indication: DEPRESSION
     Dosage: 1 DF, DAILY
     Dates: start: 20200327
  4. TRIMBOW [Concomitant]
     Active Substance: BECLOMETHASONE DIPROPIONATE\FORMOTEROL FUMARATE\GLYCOPYRROLATE
     Dosage: 4 DF, DAILY (PUFFS VIA SPACER)
     Dates: start: 20200327
  5. DOXYCYCLINE MONOHYDRATE [Suspect]
     Active Substance: DOXYCYCLINE
     Dosage: 100 MG, 2X/DAY (TWO NOW THEN ONE DAILY)
     Dates: start: 20200731
  6. SALBUTAMOL [Concomitant]
     Active Substance: ALBUTEROL
     Dosage: 8 DF, DAILY (PUFFS WHEN NEEDED.)
     Dates: start: 20200327
  7. SODIUM CHLORIDE. [Concomitant]
     Active Substance: SODIUM CHLORIDE
     Dosage: 4 DF, DAILY (WHEN REQUIRED)
     Dates: start: 20200327
  8. FEXOFENADINE [Concomitant]
     Active Substance: FEXOFENADINE HYDROCHLORIDE
     Indication: HYPERSENSITIVITY
     Dosage: 1 DF, DAILY
     Dates: start: 20200327
  9. DOXYCYCLINE MONOHYDRATE [Suspect]
     Active Substance: DOXYCYCLINE
     Dosage: 100 MG, 1X/DAY (TWO NOW THEN ONE DAILY)
     Dates: start: 20200731
  10. CARBOCISTEINE [Concomitant]
     Active Substance: CARBOCYSTEINE
     Dosage: 6 DF, DAILY
     Dates: start: 20200327
  11. PREDNISOLONE. [Concomitant]
     Active Substance: PREDNISOLONE
     Dosage: 6 AND DECREASE DOSE DAILY BY 1
     Dates: start: 20200327
  12. OMEPRAZOLE. [Concomitant]
     Active Substance: OMEPRAZOLE
     Dosage: 1 DF, 1X/DAY
     Dates: start: 20200709
  13. AVAMYS [Concomitant]
     Active Substance: FLUTICASONE FUROATE
     Dosage: 4 DF, DAILY (PUFFS LEFT NOSTRIL)
     Dates: start: 20200327
  14. MONTELUKAST [Concomitant]
     Active Substance: MONTELUKAST SODIUM
     Indication: DYSPNOEA
     Dosage: 1 DF, DAILY (IN THE EVENING (FOR BREATHING).)
     Dates: start: 20200327
  15. UNIPHYLLIN [Concomitant]
     Active Substance: THEOPHYLLINE ANHYDROUS
     Indication: ASTHMA
     Dosage: 2 DF, DAILY
     Dates: start: 20200327

REACTIONS (1)
  - Rash [Recovered/Resolved]

NARRATIVE: CASE EVENT DATE: 20200803
